FAERS Safety Report 14475048 (Version 1)
Quarter: 2018Q1

REPORT INFORMATION
  Report Type: Spontaneous
  Country: JP (occurrence: JP)
  Receive Date: 20180201
  Receipt Date: 20180201
  Transmission Date: 20180509
  Serious: Yes (Hospitalization, Other)
  Sender: FDA-Public Use
  Company Number: JP-PFIZER INC-2018043159

PATIENT
  Age: 58 Year
  Sex: Male

DRUGS (6)
  1. SUINY [Suspect]
     Active Substance: ANAGLIPTIN
     Indication: TYPE 2 DIABETES MELLITUS
     Dosage: 200 MG, UNK (100 MG TWICE)
     Route: 048
     Dates: start: 20140714, end: 20151017
  2. ACTOS [Concomitant]
     Active Substance: PIOGLITAZONE HYDROCHLORIDE
     Dosage: UNK
     Dates: end: 20151017
  3. AMARYL [Concomitant]
     Active Substance: GLIMEPIRIDE
     Dosage: UNK
     Dates: end: 20151017
  4. ARTIST [Concomitant]
     Active Substance: CARVEDILOL
     Dosage: UNK
  5. DIART [Concomitant]
     Active Substance: AZOSEMIDE
     Dosage: UNK
  6. SEIBULE [Suspect]
     Active Substance: MIGLITOL
     Indication: TYPE 2 DIABETES MELLITUS
     Dosage: 150 MG, UNK
     Route: 048
     Dates: end: 20151017

REACTIONS (1)
  - Angina unstable [Recovering/Resolving]

NARRATIVE: CASE EVENT DATE: 20151017
